FAERS Safety Report 16373779 (Version 1)
Quarter: 2019Q2

REPORT INFORMATION
  Report Type: Spontaneous
  Country: NL (occurrence: NL)
  Receive Date: 20190530
  Receipt Date: 20190530
  Transmission Date: 20190711
  Serious: Yes (Life-Threatening)
  Sender: FDA-Public Use
  Company Number: PHHY2019NL123933

PATIENT
  Age: 61 Year
  Sex: Male
  Weight: 160 kg

DRUGS (17)
  1. AMLODIPINE [Concomitant]
     Active Substance: AMLODIPINE BESYLATE
     Indication: PRODUCT USED FOR UNKNOWN INDICATION
     Dosage: 10 MG, QD
     Route: 065
  2. OMEPRAZOL [Concomitant]
     Active Substance: OMEPRAZOLE
     Indication: PRODUCT USED FOR UNKNOWN INDICATION
     Dosage: 20 MG, QD
     Route: 048
  3. ROSUVASTATINE [Concomitant]
     Active Substance: ROSUVASTATIN
     Indication: PRODUCT USED FOR UNKNOWN INDICATION
     Dosage: 20 MG, QD
     Route: 048
  4. TAVEGYL [Interacting]
     Active Substance: CLEMASTINE FUMARATE
     Indication: HYPERSENSITIVITY
     Dosage: 1 MG, Q12H
     Route: 065
     Dates: start: 20190506, end: 20190507
  5. ACETYLSALICYLIC ACID [Concomitant]
     Active Substance: ASPIRIN
     Indication: PRODUCT USED FOR UNKNOWN INDICATION
     Dosage: 80 MG, QD
     Route: 048
  6. CIPROFLOXACINE [Interacting]
     Active Substance: CIPROFLOXACIN
     Indication: ERYSIPELAS
  7. EZETIMIBE. [Concomitant]
     Active Substance: EZETIMIBE
     Indication: PRODUCT USED FOR UNKNOWN INDICATION
     Dosage: 10 MG, QD
     Route: 048
  8. NIFEDIPINE. [Concomitant]
     Active Substance: NIFEDIPINE
     Indication: PRODUCT USED FOR UNKNOWN INDICATION
     Dosage: 30 MG, QD
     Route: 048
  9. FUROSEMIDE. [Concomitant]
     Active Substance: FUROSEMIDE
     Indication: PRODUCT USED FOR UNKNOWN INDICATION
     Dosage: 40 MG, QD
     Route: 048
  10. METOPROLOL SUCCINATE. [Concomitant]
     Active Substance: METOPROLOL SUCCINATE
     Indication: PRODUCT USED FOR UNKNOWN INDICATION
     Dosage: 100 MG, QD
     Route: 048
  11. METFORMINE [Concomitant]
     Active Substance: METFORMIN HYDROCHLORIDE
     Indication: PRODUCT USED FOR UNKNOWN INDICATION
     Dosage: 500 MG, Q12H
     Route: 048
  12. ENALAPRIL [Concomitant]
     Active Substance: ENALAPRIL
     Indication: PRODUCT USED FOR UNKNOWN INDICATION
     Dosage: 40 MG, QD
     Route: 048
  13. FLUCLOXACILLINE [Interacting]
     Active Substance: FLUCLOXACILLIN
     Indication: ERYSIPELAS
     Dosage: 500 MG, Q8H (3DD1)
     Route: 065
     Dates: start: 20190504, end: 20190505
  14. CIPROFLOXACINE [Interacting]
     Active Substance: CIPROFLOXACIN
     Indication: URINARY TRACT INFECTION
     Dosage: 500 MG, Q12H (2DD1)
     Route: 065
     Dates: start: 20190506, end: 20190507
  15. GLICLAZIDE [Concomitant]
     Active Substance: GLICLAZIDE
     Indication: PRODUCT USED FOR UNKNOWN INDICATION
     Dosage: 30 MG, QD
     Route: 048
  16. AMOXICILLINE/CLAVULAANZUUR SANDOZ [Suspect]
     Active Substance: AMOXICILLIN\CLAVULANATE POTASSIUM
     Indication: ERYSIPELAS
     Dosage: 1 DF, Q8H (3DD1)
     Route: 065
     Dates: start: 20190505, end: 20190506
  17. AMOXICILLINE/CLAVULAANZUUR SANDOZ [Interacting]
     Active Substance: AMOXICILLIN\CLAVULANATE POTASSIUM
     Indication: URINARY TRACT INFECTION

REACTIONS (3)
  - Ventricular extrasystoles [Recovered/Resolved]
  - Drug interaction [Recovered/Resolved]
  - Ventricular tachycardia [Recovered/Resolved]

NARRATIVE: CASE EVENT DATE: 20190507
